FAERS Safety Report 12473081 (Version 1)
Quarter: 2016Q2

REPORT INFORMATION
  Report Type: Spontaneous
  Country: DK (occurrence: DK)
  Receive Date: 20160616
  Receipt Date: 20160616
  Transmission Date: 20160815
  Serious: Yes (Hospitalization)
  Sender: FDA-Public Use
  Company Number: DK-PFIZER INC-2016292358

PATIENT
  Age: 54 Year
  Sex: Female

DRUGS (16)
  1. DIXARIT [Concomitant]
     Active Substance: CLONIDINE HYDROCHLORIDE
  2. TODOLAC [Concomitant]
  3. PINEX [Concomitant]
     Active Substance: ACETAMINOPHEN
     Indication: PAIN
  4. TOILAX [Concomitant]
     Active Substance: BISACODYL
  5. MALFIN [Concomitant]
     Active Substance: MORPHINE SULFATE
     Indication: PAIN
  6. VESICARE [Concomitant]
     Active Substance: SOLIFENACIN SUCCINATE
  7. OXYNORM [Concomitant]
     Active Substance: OXYCODONE HYDROCHLORIDE
     Indication: PAIN
  8. VAGIFEM [Concomitant]
     Active Substance: ESTRADIOL
  9. OXYCODONE [Concomitant]
     Active Substance: OXYCODONE
     Indication: PAIN
  10. LYRICA [Suspect]
     Active Substance: PREGABALIN
     Indication: NEURALGIA
     Dosage: 2X/DAY (4 CAPSULES IN THE MORNING (100 MG) AND 6 CAPSULES IN THE EVENING (150 MG))
     Dates: start: 20121120
  11. KLORZOXAZON ^DAK^ [Concomitant]
     Indication: PAIN
  12. PANTOPRAZOLE [Concomitant]
     Active Substance: PANTOPRAZOLE SODIUM
  13. BETMIGA [Concomitant]
     Active Substance: MIRABEGRON
  14. ELTROXIN [Concomitant]
     Active Substance: LEVOTHYROXINE
     Indication: MYXOEDEMA
  15. MAGNESIA ^DAK^ [Concomitant]
     Indication: CONSTIPATION
  16. ZADITEN [Concomitant]
     Active Substance: KETOTIFEN FUMARATE

REACTIONS (6)
  - Acute psychosis [Recovered/Resolved]
  - Product use issue [Unknown]
  - Aggression [Recovered/Resolved]
  - Paranoia [Recovered/Resolved]
  - Confusional state [Recovered/Resolved]
  - Delusion [Recovered/Resolved]

NARRATIVE: CASE EVENT DATE: 20121120
